FAERS Safety Report 17533661 (Version 1)
Quarter: 2020Q1

REPORT INFORMATION
  Report Type: Spontaneous
  Country: US (occurrence: US)
  Receive Date: 20200304
  Receipt Date: 20200304
  Transmission Date: 20200409
  Serious: Yes (Hospitalization)
  Sender: FDA-Public Use
  Company Number: None

PATIENT
  Age: 56 Year
  Sex: Male
  Weight: 97.2 kg

DRUGS (2)
  1. IXAZOMIB [Suspect]
     Active Substance: IXAZOMIB
     Indication: MANTLE CELL LYMPHOMA
     Dosage: ?          OTHER FREQUENCY:DAYS 1,8+15;?
     Route: 048
     Dates: start: 20190712
  2. RITUXIMAB. [Suspect]
     Active Substance: RITUXIMAB
     Indication: MANTLE CELL LYMPHOMA
     Dosage: ?          OTHER FREQUENCY:EVERY 2 MONTHS;?
     Dates: start: 20190721

REACTIONS (6)
  - Vascular device infection [None]
  - Catheter site erythema [None]
  - Mycoplasma test positive [None]
  - Blood culture positive [None]
  - Bacterial infection [None]
  - Bacteraemia [None]

NARRATIVE: CASE EVENT DATE: 20200224
